FAERS Safety Report 21312683 (Version 1)
Quarter: 2022Q3

REPORT INFORMATION
  Report Type: Spontaneous
  Country: US (occurrence: None)
  Receive Date: 20220908
  Receipt Date: 20220908
  Transmission Date: 20221027
  Serious: Yes (Death)
  Sender: FDA-Public Use
  Company Number: None

PATIENT
  Age: 39 Year
  Sex: Female

DRUGS (3)
  1. TIRZEPATIDE [Suspect]
     Active Substance: TIRZEPATIDE
  2. VENLAFAXINE [Concomitant]
     Active Substance: VENLAFAXINE HYDROCHLORIDE
  3. SPIRONOLACTONE [Concomitant]
     Active Substance: SPIRONOLACTONE

REACTIONS (13)
  - Abdominal pain [None]
  - Constipation [None]
  - Tachycardia [None]
  - Acute kidney injury [None]
  - Faecaloma [None]
  - Proctitis [None]
  - Hypotension [None]
  - Mental status changes [None]
  - Leukocytosis [None]
  - Blood lactic acid increased [None]
  - Colitis ischaemic [None]
  - Intra-abdominal haemorrhage [None]
  - Cardiac arrest [None]

NARRATIVE: CASE EVENT DATE: 20220806
